FAERS Safety Report 5836151-4 (Version None)
Quarter: 2008Q3

REPORT INFORMATION
  Report Type: 
  Country: None (occurrence: None)
  Receive Date: 20080805
  Receipt Date: 20080729
  Transmission Date: 20090109
  Serious: Yes (Death)
  Sender: FDA-Public Use
  Company Number: 163-21880-08060367

PATIENT
  Age: 80 Year
  Sex: Male

DRUGS (11)
  1. REVLIMID [Suspect]
     Indication: MYELODYSPLASTIC SYNDROME
     Dosage: 10 MG, 1 IN 1 D,  ORAL
     Route: 048
     Dates: start: 20070518, end: 20080425
  2. ASPIRIN [Concomitant]
  3. FLONASE NASAL (FLUTICASONE PROPIONATE) [Concomitant]
  4. FLOMAX [Concomitant]
  5. COLACE (DOCUSATE SODIUM) [Concomitant]
  6. HUMULIN R [Concomitant]
  7. LOPRESSOR [Concomitant]
  8. COMPAZINE [Concomitant]
  9. INOSITOL (INOSITOL) [Concomitant]
  10. LISINOPRIL [Concomitant]
  11. NEXIUM [Concomitant]

REACTIONS (3)
  - DISEASE PROGRESSION [None]
  - DRUG INEFFECTIVE [None]
  - MYELODYSPLASTIC SYNDROME [None]
